FAERS Safety Report 12162380 (Version 1)
Quarter: 2016Q1

REPORT INFORMATION
  Report Type: Report from Study
  Country: CA (occurrence: CA)
  Receive Date: 20160309
  Receipt Date: 20160309
  Transmission Date: 20160526
  Serious: Yes (Other)
  Sender: FDA-Public Use
  Company Number: CA-JNJFOC-20160303436

PATIENT
  Age: 17 Year
  Sex: Male
  Weight: 81 kg

DRUGS (1)
  1. REMICADE [Suspect]
     Active Substance: INFLIXIMAB
     Indication: CROHN^S DISEASE
     Dosage: EVERY 6 TO 7 WEEKS
     Route: 042
     Dates: start: 20130129

REACTIONS (6)
  - Pulmonary pain [Unknown]
  - Productive cough [Unknown]
  - Product use issue [Unknown]
  - Off label use [Unknown]
  - Weight decreased [Unknown]
  - Cough [Unknown]

NARRATIVE: CASE EVENT DATE: 20130123
